FAERS Safety Report 5202705-1 (Version None)
Quarter: 2007Q1

REPORT INFORMATION
  Report Type: 
  Country: None (occurrence: None)
  Receive Date: 20070109
  Receipt Date: 20061228
  Transmission Date: 20070707
  Serious: Yes (Death)
  Sender: FDA-Public Use
  Company Number: IT-PFIZER INC-2006156042

PATIENT
  Sex: Male

DRUGS (18)
  1. VFEND [Suspect]
     Indication: ASPERGILLOSIS
     Route: 042
     Dates: start: 20040217, end: 20040218
  2. AMIKACIN SULFATE [Concomitant]
  3. VANCOMYCIN [Concomitant]
  4. CILASTATIN SODIUM W/IMIPENEM [Concomitant]
  5. DOPAMINE HCL [Concomitant]
  6. SODIUM BICARBONATE [Concomitant]
  7. DELTACORTENE [Concomitant]
  8. MEPRAL [Concomitant]
  9. ALLOPURINOL SODIUM [Concomitant]
  10. DIFLUCAN [Concomitant]
  11. LASIX [Concomitant]
  12. MODURETIC 5-50 [Concomitant]
  13. SPORANOX [Concomitant]
  14. TAZOCIN [Concomitant]
  15. FLEBOCORTID [Concomitant]
  16. ACETAMINOPHEN [Concomitant]
  17. URBASON [Concomitant]
  18. EMAGEL [Concomitant]

REACTIONS (3)
  - HEPATIC FAILURE [None]
  - METABOLIC ACIDOSIS [None]
  - RENAL FAILURE [None]
